FAERS Safety Report 15689283 (Version 2)
Quarter: 2019Q3

REPORT INFORMATION
  Report Type: Report from Study
  Country: TW (occurrence: TW)
  Receive Date: 20181205
  Receipt Date: 20190802
  Transmission Date: 20191004
  Serious: Yes (Other)
  Sender: FDA-Public Use
  Company Number: TW-SA-2018SA329375

PATIENT
  Age: 55 Year
  Sex: Female
  Weight: 60 kg

DRUGS (7)
  1. CELECOXIB. [Concomitant]
     Active Substance: CELECOXIB
     Indication: ANKYLOSING SPONDYLITIS
  2. ISONIAZID. [Suspect]
     Active Substance: ISONIAZID
     Dosage: 15 MG/KG, QW; ROUNDED UP TO NEAREST 150 MG, MAXIMUM 900 KG FOR A TOTAL OF 12 DOSES
     Route: 048
  3. RIFAPENTINE [Suspect]
     Active Substance: RIFAPENTINE
     Dosage: 900 MG, QW; A TOTAL OF 12 DOSES
  4. ISONIAZID. [Suspect]
     Active Substance: ISONIAZID
     Dosage: 15 MG/KG, QW; ROUNDED UP TO NEAREST 150 MG, MAXIMUM 900 KG FOR A TOTAL OF 12 DOSES
     Route: 048
  5. ISONIAZID. [Suspect]
     Active Substance: ISONIAZID
     Indication: LATENT TUBERCULOSIS
     Dosage: 15 MG/KG, QW; ROUNDED UP TO NEAREST 150 MG, MAXIMUM 900 KG FOR A TOTAL OF 12 DOSES
     Route: 048
  6. RIFAPENTINE [Suspect]
     Active Substance: RIFAPENTINE
     Dosage: 900 MG, QW; A TOTAL OF 12 DOSES
  7. RIFAPENTINE [Suspect]
     Active Substance: RIFAPENTINE
     Indication: LATENT TUBERCULOSIS
     Dosage: 900 MG, QW; A TOTAL OF 12 DOSES

REACTIONS (6)
  - Chills [Recovered/Resolved]
  - Malaise [Recovered/Resolved]
  - Headache [Recovered/Resolved]
  - Pyrexia [Recovered/Resolved]
  - Myalgia [Recovered/Resolved]
  - Influenza like illness [Recovered/Resolved]
